FAERS Safety Report 6013637-3 (Version None)
Quarter: 2008Q4

REPORT INFORMATION
  Report Type: 
  Country: None (occurrence: None)
  Receive Date: 20081219
  Receipt Date: 20081208
  Transmission Date: 20090506
  Serious: Yes (Other)
  Sender: FDA-Public Use
  Company Number: US-ROCHE-603530

PATIENT
  Age: 12 Year
  Sex: Male

DRUGS (2)
  1. PEG-INTERFERON ALFA 2A (RO 25-8310) [Suspect]
     Dosage: DOSAGE: 180 MCG/1.73M2
     Route: 065
  2. PLACEBO [Suspect]
     Route: 048

REACTIONS (1)
  - UVEITIS [None]
